FAERS Safety Report 9237013 (Version 3)
Quarter: 2013Q2

REPORT INFORMATION
  Report Type: Spontaneous
  Country: US (occurrence: US)
  Receive Date: 20130417
  Receipt Date: 20130524
  Transmission Date: 20140414
  Serious: No
  Sender: FDA-Public Use
  Company Number: US-PFIZER INC-2013119767

PATIENT
  Age: 58 Year
  Sex: Female
  Weight: 74.83 kg

DRUGS (5)
  1. LIPITOR [Suspect]
     Indication: BLOOD CHOLESTEROL INCREASED
     Dosage: 40 MG, ONCE A DAY
     Route: 048
  2. METFORMIN [Concomitant]
     Indication: DIABETES MELLITUS
     Dosage: 1000 MG, UNK
  3. CITALOPRAM [Concomitant]
     Dosage: 20 MG, UNK
  4. LISINOPRIL W/HYDROCHLOROTHIAZIDE [Concomitant]
     Dosage: [HYDROCHLOROTHIAZIDE 12.5 MG]/ [LISINOPRIL 20 MG], UNK
  5. GABAPENTIN [Concomitant]
     Dosage: 300 MG, UNK

REACTIONS (1)
  - Influenza [Recovered/Resolved]
